FAERS Safety Report 24144320 (Version 3)
Quarter: 2025Q4

REPORT INFORMATION
  Report Type: Spontaneous
  Country: EU (occurrence: EU)
  Receive Date: 20240728
  Receipt Date: 20251013
  Transmission Date: 20260118
  Serious: Yes (Hospitalization)
  Sender: SANDOZ
  Company Number: EU-EMA-DD-20240715-7482677-084326

PATIENT
  Age: 63 Year
  Sex: Male
  Weight: 65 kg

DRUGS (45)
  1. ACETYLCYSTEINE [Suspect]
     Active Substance: ACETYLCYSTEINE
     Indication: Mucosal inflammation
     Dosage: TAB 1
     Route: 048
     Dates: start: 19981109, end: 19981109
  2. ACETYLCYSTEINE [Suspect]
     Active Substance: ACETYLCYSTEINE
     Indication: Cough
     Dosage: TAB 1 UNK, QD 08-NOV-1998 00:00
     Route: 048
     Dates: start: 19981108
  3. AMOXICILLIN [Suspect]
     Active Substance: AMOXICILLIN
     Indication: Bronchitis
     Dosage: 1 OR 2 TAB/DAY; SINGLE DOSIS 750 MG
     Route: 048
     Dates: start: 19981107
  4. ACTRAPID [Suspect]
     Active Substance: INSULIN HUMAN
     Indication: Diabetes mellitus
     Dosage: 70 IU 07-NOV-1998 00:00
     Route: 042
     Dates: start: 19981107, end: 19981107
  5. ASPIRIN LYSINE [Suspect]
     Active Substance: ASPIRIN LYSINE
     Indication: Angina pectoris
     Dosage: UNK
     Route: 042
     Dates: start: 19981107, end: 19981107
  6. ASPIRIN [Suspect]
     Active Substance: ASPIRIN
     Indication: Coronary artery disease
     Dosage: 50 MG, QD
     Route: 048
  7. MOLSIDOMINE [Suspect]
     Active Substance: MOLSIDOMINE
     Indication: Coronary artery disease
     Dosage: 8 MG, QD 06-NOV-1998 00:00
     Route: 048
  8. DIAZEPAM [Suspect]
     Active Substance: DIAZEPAM
     Indication: Restlessness
     Dosage: UNK
     Route: 048
     Dates: start: 19981107, end: 19981107
  9. URAPIDIL [Suspect]
     Active Substance: URAPIDIL
     Indication: Angina pectoris
     Dosage: AMP 1
     Route: 042
     Dates: start: 19981107, end: 19981107
  10. FUROSEMIDE [Suspect]
     Active Substance: FUROSEMIDE
     Dosage: 40 MG 07-NOV-1998 00:00
     Route: 065
     Dates: end: 19981107
  11. FUROSEMIDE [Suspect]
     Active Substance: FUROSEMIDE
     Dosage: 80 MG, QD,UNSPECIFIED 07-NOV-1998 00:00
     Route: 048
  12. FUROSEMIDE [Suspect]
     Active Substance: FUROSEMIDE
     Dosage: 1 UNK, BID(TAB 2) 06-NOV-1998 00:00
     Route: 048
  13. FUROSEMIDE [Suspect]
     Active Substance: FUROSEMIDE
     Indication: Product used for unknown indication
     Dosage: UNK
     Route: 042
  14. FUROSEMIDE [Suspect]
     Active Substance: FUROSEMIDE
     Indication: Coronary artery insufficiency
     Dosage: UNSPECIFIED
     Route: 048
     Dates: start: 19981107
  15. FUROSEMIDE [Suspect]
     Active Substance: FUROSEMIDE
     Indication: Oedema
     Dosage: UNSPECIFIED 07-NOV-1998 00:00
     Route: 042
     Dates: end: 19981107
  16. HEPARIN [Suspect]
     Active Substance: HEPARIN SODIUM
     Dosage: UNSPECIFIED
     Route: 042
     Dates: start: 19981107, end: 19981109
  17. HEPARIN [Suspect]
     Active Substance: HEPARIN SODIUM
     Indication: Thrombosis
     Dosage: UNSPECIFIED
     Route: 058
     Dates: start: 19981107, end: 19981107
  18. ISOSORBIDE DINITRATE [Suspect]
     Active Substance: ISOSORBIDE DINITRATE
     Dosage: 20 MG, BID 08-NOV-1998 00:00
     Route: 048
     Dates: start: 19981108
  19. ISOSORBIDE DINITRATE [Suspect]
     Active Substance: ISOSORBIDE DINITRATE
     Indication: Coronary artery disease
     Dosage: UNK
     Route: 048
  20. LASIX [Suspect]
     Active Substance: FUROSEMIDE
     Indication: Coronary artery insufficiency
     Dosage: UNK
     Route: 042
     Dates: start: 19981107, end: 19981107
  21. FLUVASTATIN SODIUM [Suspect]
     Active Substance: FLUVASTATIN SODIUM
     Dosage: 40 MG, QD23-OCT-1998 00:00
     Route: 048
     Dates: start: 19981023, end: 19981106
  22. FLUVASTATIN SODIUM [Suspect]
     Active Substance: FLUVASTATIN SODIUM
     Indication: Hypercholesterolaemia
     Dosage: UNK
     Route: 048
     Dates: end: 19981106
  23. MCP [Suspect]
     Active Substance: METOCLOPRAMIDE HYDROCHLORIDE
     Dosage: 3 MG 07-NOV-1998 00:00
     Route: 042
     Dates: start: 19981107, end: 19981107
  24. MCP [Suspect]
     Active Substance: METOCLOPRAMIDE HYDROCHLORIDE
     Indication: Illness
     Dosage: AMP 1
     Route: 048
     Dates: end: 19981106
  25. MORPHINE SULFATE [Suspect]
     Active Substance: MORPHINE SULFATE
     Indication: Pain
     Dosage: 3 MG 07-NOV-1998 00:00
     Route: 042
     Dates: start: 19981107, end: 19981107
  26. NITROGLYCERIN [Suspect]
     Active Substance: NITROGLYCERIN
     Indication: Angina pectoris
     Dosage: UNSPECIFIED
     Route: 048
     Dates: start: 19981109
  27. NITROGLYCERIN [Suspect]
     Active Substance: NITROGLYCERIN
     Dosage: UNSPECIFIED
     Route: 048
     Dates: start: 19981107, end: 19981107
  28. NOVALGIN (METAMIZOLE SODIUM) [Suspect]
     Active Substance: METAMIZOLE SODIUM
     Indication: Pain
     Dosage: DROP 20 07-NOV-1998 00:00
     Route: 048
     Dates: start: 19981107, end: 19981107
  29. FUROSEMIDE [Suspect]
     Active Substance: FUROSEMIDE
     Indication: Oedema
     Dosage: 2 DOSAGE FORM, QD 06-NOV-1998 00:00
     Route: 048
     Dates: end: 19981106
  30. ACETYLCYSTEINE [Suspect]
     Active Substance: ACETYLCYSTEINE
     Indication: Cough
     Dosage: 20 DRP 09-NOV-1998 00:00
     Route: 048
     Dates: start: 19981109, end: 19981109
  31. ACETAMINOPHEN [Suspect]
     Active Substance: ACETAMINOPHEN
     Indication: Pyrexia
     Dosage: 1000 MG 08-NOV-1998 00:00
     Route: 054
     Dates: start: 19981108, end: 19981109
  32. PANTOZOL [Suspect]
     Active Substance: PANTOPRAZOLE SODIUM
     Indication: Gastric ulcer
     Dosage: TAB 1
     Route: 048
     Dates: start: 19981107
  33. NITROGLYCERIN [Suspect]
     Active Substance: NITROGLYCERIN
     Indication: Angina pectoris
     Dosage: 50 MG
     Route: 042
     Dates: start: 19981107, end: 19981108
  34. NITROGLYCERIN [Suspect]
     Active Substance: NITROGLYCERIN
     Dosage: UNK
     Route: 042
     Dates: start: 19981107, end: 19981108
  35. NITROGLYCERIN [Suspect]
     Active Substance: NITROGLYCERIN
     Dosage: UNK
     Route: 048
     Dates: end: 19981109
  36. URAPIDIL [Suspect]
     Active Substance: URAPIDIL
     Indication: Angina pectoris
     Dosage: UNK (AMP 1) 07-NOV-1998 00:00
     Route: 042
     Dates: end: 19981107
  37. ALLOPURINOL [Suspect]
     Active Substance: ALLOPURINOL
     Indication: Hyperuricaemia
     Dosage: 1 - 0.5 TAB/DAY
     Route: 048
     Dates: start: 19980925, end: 19981106
  38. AQUAPHOR [Concomitant]
     Active Substance: PETROLATUM
     Indication: Hypertension
     Dosage: 40 MG, QD
     Route: 048
     Dates: start: 19981108
  39. AQUAPHOR [Concomitant]
     Active Substance: PETROLATUM
     Indication: Product used for unknown indication
     Dosage: UNK
     Route: 048
     Dates: end: 19981106
  40. MOLSIDOMINE [Concomitant]
     Active Substance: MOLSIDOMINE
     Indication: Coronary artery disease
     Dosage: TAB 1
     Route: 048
     Dates: end: 19981106
  41. INSULIN NOS [Concomitant]
     Active Substance: INSULIN NOS
     Indication: Diabetes mellitus
     Dosage: UNK
     Route: 058
  42. Ismn basics [Concomitant]
     Indication: Coronary artery disease
     Dosage: 60 MG, QD 08-NOV-1998 00:00
     Route: 048
     Dates: end: 19981106
  43. MOLSIDOMINE [Concomitant]
     Active Substance: MOLSIDOMINE
     Indication: Coronary artery disease
     Dosage: UNK
     Route: 048
     Dates: end: 19981106
  44. CARVEDILOL [Concomitant]
     Active Substance: CARVEDILOL
     Indication: Hypertension
     Dosage: UNK
     Route: 048
  45. CARVEDILOL [Concomitant]
     Active Substance: CARVEDILOL
     Dosage: UNK
     Route: 048

REACTIONS (12)
  - Skin disorder [Unknown]
  - Pyrexia [Unknown]
  - Blood urea increased [Unknown]
  - Blood creatinine increased [Unknown]
  - Leukocytosis [Unknown]
  - Ocular hyperaemia [Unknown]
  - Oral mucosal eruption [Unknown]
  - Stevens-Johnson syndrome [Recovered/Resolved]
  - Rash [Unknown]
  - Erythema multiforme [Recovered/Resolved]
  - Pruritus [Unknown]
  - Pruritus [Unknown]

NARRATIVE: CASE EVENT DATE: 19981108
